FAERS Safety Report 7604444-6 (Version None)
Quarter: 2011Q3

REPORT INFORMATION
  Report Type: 
  Country: None (occurrence: None)
  Receive Date: 20110712
  Receipt Date: 20110704
  Transmission Date: 20111222
  Serious: Yes (Other)
  Sender: FDA-Public Use
  Company Number: DE-PFIZER INC-2011148935

PATIENT
  Age: 68 Year
  Sex: Female

DRUGS (3)
  1. CORTISONE [Concomitant]
     Dosage: UNK
  2. AZULFIDINE [Suspect]
     Dosage: 1 TABLET, 2X/DAY
  3. AZULFIDINE [Suspect]
     Dosage: 2 TABLETS, 2X/DAY

REACTIONS (12)
  - RENAL FUNCTION TEST ABNORMAL [None]
  - ALPHA 1 FOETOPROTEIN DECREASED [None]
  - BLOOD ALKALINE PHOSPHATASE INCREASED [None]
  - BLOOD ALBUMIN DECREASED [None]
  - BLOOD PRESSURE FLUCTUATION [None]
  - GAMMA-GLUTAMYLTRANSFERASE INCREASED [None]
  - HYPERSENSITIVITY [None]
  - LIVER FUNCTION TEST ABNORMAL [None]
  - FLUSHING [None]
  - THROMBOCYTOPENIA [None]
  - OEDEMA [None]
  - ALPHA 2 GLOBULIN DECREASED [None]
